FAERS Safety Report 8126109-7 (Version None)
Quarter: 2012Q1

REPORT INFORMATION
  Report Type: 
  Country: None (occurrence: None)
  Receive Date: 20120209
  Receipt Date: 20120201
  Transmission Date: 20120608
  Serious: Yes (Other)
  Sender: FDA-Public Use
  Company Number: PHHY2011BR110215

PATIENT
  Age: 46 Year
  Sex: Female

DRUGS (6)
  1. ANTIDEPRESSANTS [Concomitant]
     Dosage: UNK UKN, UNK
  2. LABIRIN [Suspect]
     Indication: CEREBROVASCULAR DISORDER
     Dosage: 1 DF, DAILY
     Route: 048
  3. TRILEPTAL [Suspect]
     Dosage: 300 MG, BID
     Route: 048
  4. TRILEPTAL [Suspect]
     Indication: CEREBROVASCULAR DISORDER
     Dosage: 300 MG TABLETS (2 TABLET IN THE MORNING AND 1 TABLET AT NIGHT)
     Route: 048
  5. HYDROCHLOROTHIAZIDE [Concomitant]
     Indication: HYPERTENSION
     Dosage: 1 DF, DAILY
     Route: 048
  6. ENALAPRIL MALEATE [Concomitant]
     Indication: HYPERTENSION
     Dosage: 1 DF, DAILY

REACTIONS (9)
  - CONDITION AGGRAVATED [None]
  - DRUG INEFFECTIVE [None]
  - GAIT DISTURBANCE [None]
  - SINUSITIS [None]
  - VISUAL ACUITY REDUCED [None]
  - NERVOUS SYSTEM DISORDER [None]
  - BRAIN HYPOXIA [None]
  - CEREBROVASCULAR INSUFFICIENCY [None]
  - FEELING ABNORMAL [None]
